FAERS Safety Report 4362825-0 (Version None)
Quarter: 2004Q2

REPORT INFORMATION
  Report Type: 
  Country: None (occurrence: None)
  Receive Date: 20040518
  Receipt Date: 20040507
  Transmission Date: 20050107
  Serious: Yes (Other)
  Sender: FDA-Public Use
  Company Number: US-JNJFOC-20040501797

PATIENT
  Age: 39 Year
  Sex: Female

DRUGS (10)
  1. DURAGESIC [Suspect]
     Indication: PAIN
     Dosage: 50 UG/HR, 1 IN 48 HOUR, TRANSDERMAL
     Route: 062
     Dates: end: 20020801
  2. BEXTRA [Concomitant]
  3. BACLOFEN [Concomitant]
  4. DARVOCET [Concomitant]
  5. TRIVORA (EUGYNON) [Concomitant]
  6. AMITRIPTYLINE HCL [Concomitant]
  7. CLONAZEPAM [Concomitant]
  8. ZOMIG [Concomitant]
  9. ZANAFLEX [Concomitant]
  10. MIRALAX [Concomitant]

REACTIONS (6)
  - FALL [None]
  - HEAD INJURY [None]
  - LETHARGY [None]
  - LOSS OF CONSCIOUSNESS [None]
  - OVERDOSE [None]
  - VOMITING [None]
